FAERS Safety Report 25322890 (Version 1)
Quarter: 2025Q2

REPORT INFORMATION
  Report Type: Report from Study
  Country: CA (occurrence: CA)
  Receive Date: 20250516
  Receipt Date: 20250516
  Transmission Date: 20250717
  Serious: Yes (Other)
  Sender: CELLTRION
  Company Number: CA-CELLTRION INC.-2025CA014089

PATIENT

DRUGS (16)
  1. RITUXIMAB [Suspect]
     Active Substance: RITUXIMAB
     Indication: Rheumatoid arthritis
     Route: 042
  2. ACTEMRA [Suspect]
     Active Substance: TOCILIZUMAB
     Indication: Rheumatoid arthritis
     Dosage: 412.0 MILLIGRAM, 1 EVERY 4 WEEKS
     Route: 058
  3. ACTEMRA [Suspect]
     Active Substance: TOCILIZUMAB
     Indication: Rheumatoid arthritis
     Route: 058
  4. ASPIRIN [Concomitant]
     Active Substance: ASPIRIN
     Route: 065
  5. ATENOLOL [Concomitant]
     Active Substance: ATENOLOL
  6. CANNABIS SATIVA FLOWERING TOP [Concomitant]
     Active Substance: CANNABIS SATIVA FLOWERING TOP
  7. HYDROCHLOROTHIAZIDE [Concomitant]
     Active Substance: HYDROCHLOROTHIAZIDE
  8. LISINOPRIL [Concomitant]
     Active Substance: LISINOPRIL
  9. NIACIN [Concomitant]
     Active Substance: NIACIN
  10. NIACIN [Concomitant]
     Active Substance: NIACIN
  11. NIFEDIPINE [Concomitant]
     Active Substance: NIFEDIPINE
  12. POTASSIUM [Concomitant]
     Active Substance: POTASSIUM
  13. POTASSIUM [Concomitant]
     Active Substance: POTASSIUM
  14. ROSUVASTATIN CALCIUM [Concomitant]
     Active Substance: ROSUVASTATIN CALCIUM
  15. TYLENOL 8 HR ARTHRITIS PAIN [Concomitant]
     Active Substance: ACETAMINOPHEN
  16. TYLENOL 8 HR ARTHRITIS PAIN [Concomitant]
     Active Substance: ACETAMINOPHEN

REACTIONS (5)
  - Constipation [Unknown]
  - Skin cancer [Unknown]
  - Tooth disorder [Unknown]
  - Abdominal pain [Unknown]
  - Abdominal pain upper [Unknown]
